FAERS Safety Report 9820834 (Version 1)
Quarter: 2013Q4

REPORT INFORMATION
  Report Type: Spontaneous
  Country: US (occurrence: None)
  Receive Date: 20131028
  Receipt Date: 20131028
  Transmission Date: 20140711
  Serious: Yes (Other)
  Sender: FDA-Public Use
  Company Number: 2013US001469

PATIENT
  Age: 52 Year
  Sex: Male
  Weight: 100 kg

DRUGS (4)
  1. ICLUSIG [Suspect]
     Indication: CHRONIC MYELOID LEUKAEMIA
     Route: 048
     Dates: start: 20130227
  2. WELLBUTRIN (BUPROPION HYDROCHLORIDE) [Concomitant]
  3. CYCLOBENZAPRINE (CYCLOBENZAPRINE) [Concomitant]
  4. MULTIVITAMIN (VITAMINS NOS) [Concomitant]

REACTIONS (2)
  - Depression [None]
  - Sinus headache [None]
